FAERS Safety Report 19121521 (Version 1)
Quarter: 2021Q2

REPORT INFORMATION
  Report Type: Spontaneous
  Country: US (occurrence: US)
  Receive Date: 20210412
  Receipt Date: 20210412
  Transmission Date: 20210717
  Serious: Yes (Hospitalization)
  Sender: FDA-Public Use
  Company Number: None

PATIENT
  Age: 9 Month
  Sex: Male

DRUGS (10)
  1. TRAZODONE [Concomitant]
     Active Substance: TRAZODONE HYDROCHLORIDE
  2. DEXAMETHASON [Concomitant]
     Active Substance: DEXAMETHASONE
  3. AMOX/K CLAV [Concomitant]
     Active Substance: AMOXICILLIN\CLAVULANATE POTASSIUM
  4. DIAZEPAM. [Concomitant]
     Active Substance: DIAZEPAM
  5. OXYCODONE [Concomitant]
     Active Substance: OXYCODONE
  6. SILDENAFIL 10MG/ML SUSP [Suspect]
     Active Substance: SILDENAFIL
     Indication: PULMONARY HYPERTENSION
     Route: 048
  7. PANTOPRAZOLE [Concomitant]
     Active Substance: PANTOPRAZOLE
  8. POLYETH GLYC [Concomitant]
     Active Substance: POLYETHYLENE GLYCOLS
  9. AMLODIPINE [Concomitant]
     Active Substance: AMLODIPINE BESYLATE
  10. NAFTIFINE HCL [Concomitant]

REACTIONS (1)
  - Pleural effusion [None]

NARRATIVE: CASE EVENT DATE: 202012
